FAERS Safety Report 4688410-9 (Version None)
Quarter: 2005Q2

REPORT INFORMATION
  Report Type: 
  Country: None (occurrence: None)
  Receive Date: 20050610
  Receipt Date: 20050610
  Transmission Date: 20051028
  Serious: Yes (Hospitalization)
  Sender: FDA-Public Use
  Company Number: None

PATIENT
  Age: 69 Year
  Sex: Female
  Weight: 54.5 kg

DRUGS (8)
  1. LINEZOLID    600MG     PHARMACIA + UPJOHN [Suspect]
     Indication: STAPHYLOCOCCAL OSTEOMYELITIS
     Dosage: 600MG   BID   PARENTERAL
     Route: 051
     Dates: start: 20050327, end: 20050415
  2. DETROL [Concomitant]
  3. XANAX [Concomitant]
  4. EFFEXOR [Concomitant]
  5. ATENOLOL [Concomitant]
  6. RESTORIL [Concomitant]
  7. AROMASIN [Concomitant]
  8. PRILOSEC [Concomitant]

REACTIONS (6)
  - BLOOD PHOSPHORUS DECREASED [None]
  - DECREASED APPETITE [None]
  - FATIGUE [None]
  - LACTIC ACIDOSIS [None]
  - NAUSEA [None]
  - VOMITING [None]
